FAERS Safety Report 20114563 (Version 1)
Quarter: 2021Q4

REPORT INFORMATION
  Report Type: Spontaneous
  Country: US (occurrence: US)
  Receive Date: 20211125
  Receipt Date: 20211125
  Transmission Date: 20220303
  Serious: No
  Sender: FDA-Public Use
  Company Number: US-SA-SAC20211117000846

PATIENT
  Sex: Female

DRUGS (2)
  1. DUPIXENT [Suspect]
     Active Substance: DUPILUMAB
     Indication: Dermatitis atopic
     Dosage: 300 MG/2 ML, QOW
     Route: 058
     Dates: start: 20211009
  2. DUPIXENT [Suspect]
     Active Substance: DUPILUMAB
     Dosage: INCREASED DOSE
     Dates: start: 202111

REACTIONS (1)
  - Dermatitis atopic [Not Recovered/Not Resolved]
